FAERS Safety Report 9200792 (Version 1)
Quarter: 2013Q1

REPORT INFORMATION
  Report Type: Spontaneous
  Country: LT (occurrence: None)
  Receive Date: 20130327
  Receipt Date: 20130327
  Transmission Date: 20140127
  Serious: Yes (Life-Threatening, Hospitalization)
  Sender: FDA-Public Use
  Company Number: 2013-05158

PATIENT
  Sex: Female

DRUGS (2)
  1. CLONAZEPAM [Suspect]
     Indication: INTENTIONAL OVERDOSE
     Dosage: 8 TABLETS OF 2 MG,
     Route: 048
  2. ATENOLOL [Suspect]
     Indication: INTENTIONAL OVERDOSE
     Dosage: 10 TABLETS
     Route: 048

REACTIONS (5)
  - Suicide attempt [None]
  - Hypotension [None]
  - Bradycardia [None]
  - Somnolence [None]
  - Overdose [None]
